FAERS Safety Report 7534673-1 (Version None)
Quarter: 2011Q2

REPORT INFORMATION
  Report Type: 
  Country: None (occurrence: None)
  Receive Date: 20110609
  Receipt Date: 20110406
  Transmission Date: 20111010
  Serious: Yes (Other)
  Sender: FDA-Public Use
  Company Number: PHHY2011BR08681

PATIENT
  Sex: Female

DRUGS (1)
  1. AFINITOR [Suspect]
     Indication: BREAST CANCER
     Dosage: 10 MG, DAILY
     Route: 048
     Dates: start: 20090929

REACTIONS (8)
  - ASTHMA [None]
  - METASTASES TO LUNG [None]
  - PNEUMONITIS [None]
  - CONJUNCTIVITIS [None]
  - COUGH [None]
  - ONYCHOMADESIS [None]
  - NEOPLASM PROGRESSION [None]
  - MUCOSAL INFLAMMATION [None]
